FAERS Safety Report 12051898 (Version 1)
Quarter: 2016Q1

REPORT INFORMATION
  Report Type: Spontaneous
  Country: US (occurrence: US)
  Receive Date: 20160209
  Receipt Date: 20160209
  Transmission Date: 20160526
  Serious: Yes (Other)
  Sender: FDA-Public Use
  Company Number: US-BRISTOL-MYERS SQUIBB COMPANY-BMS-2016-007434

PATIENT
  Sex: Male

DRUGS (1)
  1. ABILIFY [Suspect]
     Active Substance: ARIPIPRAZOLE
     Indication: PRODUCT USED FOR UNKNOWN INDICATION
     Route: 065

REACTIONS (9)
  - Dysarthria [Unknown]
  - Extrapyramidal disorder [Unknown]
  - Blood glucose abnormal [Unknown]
  - Weight increased [Unknown]
  - Amnesia [Unknown]
  - Angina pectoris [Unknown]
  - Malaise [Unknown]
  - Delusion [Unknown]
  - Gastrointestinal disorder [Unknown]
